FAERS Safety Report 4269712-7 (Version None)
Quarter: 2004Q1

REPORT INFORMATION
  Report Type: 
  Country: None (occurrence: None)
  Receive Date: 20040105
  Receipt Date: 20031219
  Transmission Date: 20041129
  Serious: Yes (Death)
  Sender: FDA-Public Use
  Company Number: 200310793BCA

PATIENT
  Age: 72 Year
  Sex: Male

DRUGS (11)
  1. PLASBUMIN-25 [Suspect]
     Dosage: 100 ML, TOTAL DAILY, INTRAVENO
     Route: 042
     Dates: start: 20031110
  2. PLASBUMIN-25 [Suspect]
     Dosage: 100 ML, TOTAL DAILY, INTRAVENO
     Route: 042
     Dates: start: 20031110
  3. PLASBUMIN-25 [Suspect]
  4. LASIX [Concomitant]
  5. METFORMINE ^MERCK^ [Concomitant]
  6. IRON [Concomitant]
  7. PREVACID [Concomitant]
  8. ALTACE [Concomitant]
  9. COMBIVENT [Concomitant]
  10. FLOVENT [Concomitant]
  11. SEREVENT [Concomitant]

REACTIONS (26)
  - ACUTE MYOCARDIAL INFARCTION [None]
  - AORTIC ATHEROSCLEROSIS [None]
  - ASCITES [None]
  - ATRIOVENTRICULAR BLOCK FIRST DEGREE [None]
  - AXILLARY MASS [None]
  - BENIGN PROSTATIC HYPERPLASIA [None]
  - CHILLS [None]
  - CHOLELITHIASIS [None]
  - COLON CANCER METASTATIC [None]
  - CONDITION AGGRAVATED [None]
  - CORONARY ARTERY ATHEROSCLEROSIS [None]
  - CYANOSIS [None]
  - DERMOID CYST [None]
  - DYSPNOEA [None]
  - FLUID OVERLOAD [None]
  - MYOCARDIAL INFARCTION [None]
  - NEPHROSCLEROSIS [None]
  - OXYGEN SATURATION DECREASED [None]
  - PAIN [None]
  - PLEURAL EFFUSION [None]
  - PROSTATE CANCER [None]
  - PULMONARY FIBROSIS [None]
  - PYREXIA [None]
  - RALES [None]
  - TACHYCARDIA [None]
  - WHEEZING [None]
